FAERS Safety Report 4430720-4 (Version None)
Quarter: 2004Q3

REPORT INFORMATION
  Report Type: 
  Country: None (occurrence: None)
  Receive Date: 20040819
  Receipt Date: 20040819
  Transmission Date: 20050211
  Serious: Yes (Other)
  Sender: FDA-Public Use
  Company Number: None

PATIENT
  Sex: Female
  Weight: 65.7716 kg

DRUGS (1)
  1. LEVAQUIN [Suspect]

REACTIONS (4)
  - CONFUSIONAL STATE [None]
  - DELIRIUM [None]
  - DRY MOUTH [None]
  - PARANOIA [None]
